FAERS Safety Report 5555988-2 (Version None)
Quarter: 2007Q4

REPORT INFORMATION
  Report Type: 
  Country: None (occurrence: None)
  Receive Date: 20071213
  Receipt Date: 20071203
  Transmission Date: 20080405
  Serious: Yes (Other)
  Sender: FDA-Public Use
  Company Number: IT-PFIZER INC-2007102344

PATIENT
  Age: 62 Year
  Sex: Male

DRUGS (4)
  1. VIAGRA [Suspect]
     Dosage: DAILY DOSE:100MG
  2. ALL OTHER THERAPEUTIC PRODUCTS [Concomitant]
  3. ANTIHYPERTENSIVES [Concomitant]
  4. INSULIN [Concomitant]

REACTIONS (1)
  - VENTRICULAR EXTRASYSTOLES [None]
